FAERS Safety Report 16954230 (Version 1)
Quarter: 2019Q4

REPORT INFORMATION
  Report Type: Spontaneous
  Country: US (occurrence: US)
  Receive Date: 20191023
  Receipt Date: 20191023
  Transmission Date: 20200122
  Serious: No
  Sender: FDA-Public Use
  Company Number: US-ABBVIE-18S-163-2605633-00

PATIENT
  Age: 41 Year
  Sex: Female

DRUGS (6)
  1. GABAPENTIN. [Concomitant]
     Active Substance: GABAPENTIN
     Indication: PAIN
     Route: 065
  2. NORTRIPTYLINE [Concomitant]
     Active Substance: NORTRIPTYLINE
     Indication: DEPRESSION
     Route: 065
  3. FLUOXETINE [Concomitant]
     Active Substance: FLUOXETINE HYDROCHLORIDE
     Indication: DEPRESSION
     Route: 065
  4. RANITIDINE. [Concomitant]
     Active Substance: RANITIDINE
     Indication: GASTROOESOPHAGEAL REFLUX DISEASE
     Route: 065
  5. ANASTROZOLE. [Concomitant]
     Active Substance: ANASTROZOLE
     Indication: BREAST CANCER
     Route: 065
  6. LUPRON DEPOT [Suspect]
     Active Substance: LEUPROLIDE ACETATE
     Indication: BREAST CANCER
     Route: 030
     Dates: start: 201811

REACTIONS (2)
  - Expired product administered [Not Recovered/Not Resolved]
  - Off label use [Not Recovered/Not Resolved]

NARRATIVE: CASE EVENT DATE: 2018
